FAERS Safety Report 11826081 (Version 1)
Quarter: 2015Q4

REPORT INFORMATION
  Report Type: Spontaneous
  Country: US (occurrence: None)
  Receive Date: 20151210
  Receipt Date: 20151210
  Transmission Date: 20160305
  Serious: No
  Sender: FDA-Public Use
  Company Number: None

PATIENT
  Age: 53 Year
  Sex: Female

DRUGS (6)
  1. RITUXIMAB [Concomitant]
     Active Substance: RITUXIMAB
  2. AMPYRA [Concomitant]
     Active Substance: DALFAMPRIDINE
  3. PROVIGIL [Concomitant]
     Active Substance: MODAFINIL
  4. ZANAFLEX [Concomitant]
     Active Substance: TIZANIDINE HYDROCHLORIDE
  5. AMPYRA [Suspect]
     Active Substance: DALFAMPRIDINE
     Indication: MULTIPLE SCLEROSIS
     Route: 048
     Dates: start: 201302
  6. DITROPAN [Concomitant]
     Active Substance: OXYBUTYNIN CHLORIDE

REACTIONS (1)
  - Culture urine positive [None]

NARRATIVE: CASE EVENT DATE: 20151201
